FAERS Safety Report 7490263-0 (Version None)
Quarter: 2011Q2

REPORT INFORMATION
  Report Type: 
  Country: None (occurrence: None)
  Receive Date: 20110512
  Receipt Date: 20110503
  Transmission Date: 20111010
  Serious: Yes (Other)
  Sender: FDA-Public Use
  Company Number: ACO_20186_2010

PATIENT
  Age: 60 Year
  Sex: Female
  Weight: 98.9 kg

DRUGS (12)
  1. ZANAFLEX [Suspect]
     Indication: PRODUCT USED FOR UNKNOWN INDICATION
     Dosage: 4 MG,
  2. AMANTADINE HCL [Concomitant]
  3. TRAMADOL HCL [Concomitant]
  4. AMPYRA [Suspect]
     Indication: GAIT DISTURBANCE
     Dosage: 10 MG, BID, ORAL
     Route: 048
     Dates: start: 20100902, end: 20100903
  5. LISINOPRIL [Concomitant]
  6. OXYBUTYNIN [Concomitant]
  7. BUMEX [Concomitant]
  8. LEVOTHYROXINE SODIUM [Concomitant]
  9. HYDROCHLOROTHIAZIDE [Concomitant]
  10. AVONEX [Concomitant]
  11. ASCORBIC ACID [Concomitant]
  12. ANTIBIOTICS [Concomitant]

REACTIONS (5)
  - UNRESPONSIVE TO STIMULI [None]
  - TREMOR [None]
  - MOUTH HAEMORRHAGE [None]
  - MUSCULOSKELETAL STIFFNESS [None]
  - CONVULSION [None]
